FAERS Safety Report 11198025 (Version 2)
Quarter: 2015Q3

REPORT INFORMATION
  Report Type: Spontaneous
  Country: IT (occurrence: IT)
  Receive Date: 20150617
  Receipt Date: 20150720
  Transmission Date: 20151125
  Serious: Yes (Hospitalization)
  Sender: FDA-Public Use
  Company Number: IT-BAXTER-2015BAX032436

PATIENT
  Age: 37 Year
  Sex: Female
  Weight: 58 kg

DRUGS (5)
  1. AZATIOPRINA [Concomitant]
     Active Substance: AZATHIOPRINE
     Indication: PRODUCT USED FOR UNKNOWN INDICATION
     Route: 065
     Dates: start: 2010, end: 201302
  2. MITOXANTRONE [Concomitant]
     Active Substance: MITOXANTRONE HYDROCHLORIDE
     Dosage: 10 CYCLES, 10 MG/M^2/DIE
     Route: 065
     Dates: start: 2009
  3. ENDOXAN BAXTER [Suspect]
     Active Substance: CYCLOPHOSPHAMIDE
     Indication: PRODUCT USED FOR UNKNOWN INDICATION
     Dosage: 4G/200 ML
     Route: 042
     Dates: start: 20150311, end: 20150408
  4. TYSABRI [Suspect]
     Active Substance: NATALIZUMAB
     Indication: PRODUCT USED FOR UNKNOWN INDICATION
     Dosage: 18 SOMMINISTRATIONS
     Route: 065
     Dates: start: 20150126
  5. MITOXANTRONE [Concomitant]
     Active Substance: MITOXANTRONE HYDROCHLORIDE
     Indication: PRODUCT USED FOR UNKNOWN INDICATION
     Dosage: 10 CYCLES, 10 MG/M^2/DIE
     Route: 065
     Dates: start: 2008

REACTIONS (3)
  - Multiple sclerosis relapse [Unknown]
  - Movement disorder [Unknown]
  - Cognitive disorder [Unknown]

NARRATIVE: CASE EVENT DATE: 20150513
